FAERS Safety Report 18198346 (Version 6)
Quarter: 2021Q1

REPORT INFORMATION
  Report Type: Report from Study
  Country: BR (occurrence: BR)
  Receive Date: 20200826
  Receipt Date: 20210211
  Transmission Date: 20210419
  Serious: Yes (Life-Threatening, Hospitalization, Disabling, Other)
  Sender: FDA-Public Use
  Company Number: BR-ASTRAZENECA-2020SE62511

PATIENT
  Age: 27925 Day
  Sex: Male

DRUGS (53)
  1. CISPLATIN. [Suspect]
     Active Substance: CISPLATIN
     Indication: TRANSITIONAL CELL CARCINOMA
     Route: 042
     Dates: start: 20200422, end: 20200422
  2. GEMCITABINE. [Suspect]
     Active Substance: GEMCITABINE
     Indication: TRANSITIONAL CELL CARCINOMA
     Route: 042
     Dates: start: 20200422, end: 20200422
  3. CEFEPIME [Concomitant]
     Active Substance: CEFEPIME HYDROCHLORIDE
     Indication: NEUTROPENIA
     Route: 042
     Dates: start: 20200509, end: 20200519
  4. PREDNISONE. [Concomitant]
     Active Substance: PREDNISONE
     Indication: ASPARTATE AMINOTRANSFERASE INCREASED
     Route: 042
     Dates: start: 20200610, end: 20200610
  5. DICLOFENAC [Concomitant]
     Active Substance: DICLOFENAC
     Indication: PROPHYLAXIS
     Dosage: 1.00 OTHER APLICATION TID
     Route: 061
     Dates: start: 20200519, end: 20200603
  6. BROMOPRIDE [Concomitant]
     Active Substance: BROMOPRIDE
     Indication: ABDOMINAL PAIN UPPER
     Route: 048
     Dates: start: 20200517
  7. TAMSULOSIN [Concomitant]
     Active Substance: TAMSULOSIN
     Indication: BENIGN PROSTATIC HYPERPLASIA
     Route: 048
     Dates: start: 20200110
  8. DEXAMETHAZONE [Concomitant]
     Active Substance: DEXAMETHASONE
     Indication: CHEMOTHERAPY SIDE EFFECT PROPHYLAXIS
     Dosage: 8.0MG ONCE/SINGLE ADMINISTRATION
     Route: 042
     Dates: start: 20200429, end: 20200429
  9. CONCENTRATED RED BLOOD CELLS [Concomitant]
     Indication: ANAEMIA
     Dosage: 330.0ML ONCE/SINGLE ADMINISTRATION
     Route: 042
     Dates: start: 20200520, end: 20200520
  10. PREDNISONE. [Concomitant]
     Active Substance: PREDNISONE
     Indication: ASPARTATE AMINOTRANSFERASE INCREASED
     Route: 048
     Dates: start: 20200527, end: 20200601
  11. ALPRAZOLAM. [Concomitant]
     Active Substance: ALPRAZOLAM
     Indication: DEPRESSION
     Route: 048
     Dates: start: 20200525, end: 20200526
  12. DURVALUMAB. [Suspect]
     Active Substance: DURVALUMAB
     Indication: TRANSITIONAL CELL CARCINOMA
     Route: 042
     Dates: start: 20200306, end: 20200306
  13. GEMCITABINE. [Suspect]
     Active Substance: GEMCITABINE
     Indication: TRANSITIONAL CELL CARCINOMA
     Route: 042
     Dates: start: 20200313, end: 20200313
  14. GRANULOKINE [Concomitant]
     Active Substance: FILGRASTIM
     Indication: NEUTROPENIA
     Route: 058
     Dates: start: 20200508, end: 20200510
  15. CEFEPIME [Concomitant]
     Active Substance: CEFEPIME HYDROCHLORIDE
     Indication: LEUKOPENIA
     Route: 042
     Dates: start: 20200508, end: 20200508
  16. CEFEPIME [Concomitant]
     Active Substance: CEFEPIME HYDROCHLORIDE
     Indication: LEUKOPENIA
     Route: 042
     Dates: start: 20200509, end: 20200519
  17. DIPYRONE [Concomitant]
     Active Substance: DIPYRONE
     Indication: PYREXIA
     Route: 048
     Dates: start: 20200228
  18. MIOSAN [Concomitant]
     Active Substance: CYCLOBENZAPRINE
     Indication: GROIN PAIN
     Route: 048
     Dates: start: 20200228
  19. CONCENTRATED RED BLOOD CELLS [Concomitant]
     Indication: ANAEMIA
     Dosage: 330.0ML ONCE/SINGLE ADMINISTRATION
     Route: 042
     Dates: start: 20200520, end: 20200520
  20. DURVALUMAB. [Suspect]
     Active Substance: DURVALUMAB
     Indication: TRANSITIONAL CELL CARCINOMA
     Route: 042
     Dates: start: 20200401, end: 20200401
  21. CISPLATIN. [Suspect]
     Active Substance: CISPLATIN
     Indication: TRANSITIONAL CELL CARCINOMA
     Route: 042
     Dates: start: 20200401, end: 20200401
  22. GEMCITABINE. [Suspect]
     Active Substance: GEMCITABINE
     Indication: TRANSITIONAL CELL CARCINOMA
     Route: 042
     Dates: start: 20200408, end: 20200408
  23. GEMCITABINE. [Suspect]
     Active Substance: GEMCITABINE
     Indication: TRANSITIONAL CELL CARCINOMA
     Route: 042
     Dates: start: 20200429, end: 20200429
  24. TAMSULOSIN [Concomitant]
     Active Substance: TAMSULOSIN
     Indication: BENIGN PROSTATIC HYPERPLASIA
     Route: 048
     Dates: start: 20200110
  25. XARELTO [Concomitant]
     Active Substance: RIVAROXABAN
     Indication: THROMBOSIS
     Route: 048
     Dates: start: 20200210, end: 20200521
  26. XARELTO [Concomitant]
     Active Substance: RIVAROXABAN
     Indication: THROMBOSIS
     Route: 048
     Dates: start: 20200120, end: 20200209
  27. GRANULOKINE [Concomitant]
     Active Substance: FILGRASTIM
     Indication: NEUTROPENIA
     Route: 058
     Dates: start: 20200525, end: 20200525
  28. LYRICA [Concomitant]
     Active Substance: PREGABALIN
     Indication: GROIN PAIN
     Route: 048
     Dates: start: 20200228
  29. ENOXAPARIN [Concomitant]
     Active Substance: ENOXAPARIN
     Indication: THROMBOSIS
     Route: 058
     Dates: start: 20200520, end: 20200526
  30. AKYNZEO [Concomitant]
     Active Substance: NETUPITANT\PALONOSETRON HYDROCHLORIDE
     Indication: CHEMOTHERAPY SIDE EFFECT PROPHYLAXIS
     Dosage: 1.0DF ONCE/SINGLE ADMINISTRATION
     Route: 048
     Dates: start: 20200401, end: 20200401
  31. DEXAMETHASONE. [Concomitant]
     Active Substance: DEXAMETHASONE
     Indication: CHEMOTHERAPY SIDE EFFECT PROPHYLAXIS
     Dosage: 12.0MG ONCE/SINGLE ADMINISTRATION
     Route: 042
     Dates: start: 20200306, end: 20200306
  32. DEXAMETHASONE. [Concomitant]
     Active Substance: DEXAMETHASONE
     Indication: CHEMOTHERAPY SIDE EFFECT PROPHYLAXIS
     Dosage: 8.0MG ONCE/SINGLE ADMINISTRATION
     Route: 042
     Dates: start: 20200408, end: 20200408
  33. MAGNESIUM SULFATE. [Concomitant]
     Active Substance: MAGNESIUM SULFATE
     Indication: HYPOMAGNESAEMIA
     Route: 048
     Dates: start: 20200408, end: 20200516
  34. GRANULOKINE [Concomitant]
     Active Substance: FILGRASTIM
     Indication: LEUKOPENIA
     Route: 058
     Dates: start: 20200508, end: 20200510
  35. CISPLATIN. [Suspect]
     Active Substance: CISPLATIN
     Indication: TRANSITIONAL CELL CARCINOMA
     Route: 042
     Dates: start: 20200306, end: 20200306
  36. GEMCITABINE. [Suspect]
     Active Substance: GEMCITABINE
     Indication: TRANSITIONAL CELL CARCINOMA
     Route: 042
     Dates: start: 20200306, end: 20200306
  37. AKYNZEO [Concomitant]
     Active Substance: NETUPITANT\PALONOSETRON HYDROCHLORIDE
     Indication: CHEMOTHERAPY SIDE EFFECT PROPHYLAXIS
     Dosage: 1.0DF ONCE/SINGLE ADMINISTRATION
     Route: 048
     Dates: start: 20200306, end: 20200306
  38. DEXAMETHASONE. [Concomitant]
     Active Substance: DEXAMETHASONE
     Indication: CHEMOTHERAPY SIDE EFFECT PROPHYLAXIS
     Dosage: 12.0MG ONCE/SINGLE ADMINISTRATION
     Route: 042
     Dates: start: 20200401, end: 20200401
  39. DIPYRONE [Concomitant]
     Active Substance: DIPYRONE
     Indication: GROIN PAIN
     Route: 048
     Dates: start: 20200228
  40. TARGOCID [Concomitant]
     Active Substance: TEICOPLANIN
     Indication: FEBRILE NEUTROPENIA
     Route: 042
     Dates: start: 20200512, end: 20200519
  41. ENOXAPARIN [Concomitant]
     Active Substance: ENOXAPARIN
     Indication: THROMBOSIS
     Route: 058
     Dates: start: 20200609, end: 20200609
  42. BROMAZEPAM [Concomitant]
     Active Substance: BROMAZEPAM
     Indication: DEPRESSION
     Route: 048
     Dates: start: 20200527, end: 20200607
  43. FLUCONAZOLE. [Concomitant]
     Active Substance: FLUCONAZOLE
     Indication: FUNGAL INFECTION
     Route: 048
     Dates: start: 20200606, end: 20200606
  44. DURVALUMAB. [Suspect]
     Active Substance: DURVALUMAB
     Indication: TRANSITIONAL CELL CARCINOMA
     Route: 042
     Dates: start: 20200422, end: 20200422
  45. GEMCITABINE. [Suspect]
     Active Substance: GEMCITABINE
     Indication: TRANSITIONAL CELL CARCINOMA
     Route: 042
     Dates: start: 20200401, end: 20200401
  46. GRANULOKINE [Concomitant]
     Active Substance: FILGRASTIM
     Indication: LEUKOPENIA
     Route: 058
     Dates: start: 20200525, end: 20200525
  47. CEFEPIME [Concomitant]
     Active Substance: CEFEPIME HYDROCHLORIDE
     Indication: NEUTROPENIA
     Route: 042
     Dates: start: 20200508, end: 20200508
  48. CEFUROXIME. [Concomitant]
     Active Substance: CEFUROXIME
     Indication: INFECTED DERMAL CYST
     Route: 048
     Dates: start: 20200327
  49. DEXAMETHASONE. [Concomitant]
     Active Substance: DEXAMETHASONE
     Indication: CHEMOTHERAPY SIDE EFFECT PROPHYLAXIS
     Dosage: 8.0MG ONCE/SINGLE ADMINISTRATION
     Route: 042
     Dates: start: 20200313, end: 20200313
  50. TRAMAL [Concomitant]
     Active Substance: TRAMADOL
     Indication: GROIN PAIN
     Route: 048
     Dates: start: 20200228
  51. PREDNISONE. [Concomitant]
     Active Substance: PREDNISONE
     Indication: ASPARTATE AMINOTRANSFERASE INCREASED
     Route: 048
     Dates: start: 20200602, end: 20200606
  52. PREDNISONE. [Concomitant]
     Active Substance: PREDNISONE
     Indication: ASPARTATE AMINOTRANSFERASE INCREASED
     Route: 042
     Dates: start: 20200607, end: 20200609
  53. PREDNISONE. [Concomitant]
     Active Substance: PREDNISONE
     Indication: ASPARTATE AMINOTRANSFERASE INCREASED
     Route: 048
     Dates: start: 20200602, end: 20200602

REACTIONS (3)
  - Pneumothorax [Recovered/Resolved]
  - Febrile neutropenia [Not Recovered/Not Resolved]
  - COVID-19 [Not Recovered/Not Resolved]

NARRATIVE: CASE EVENT DATE: 20200508
